FAERS Safety Report 11594555 (Version 4)
Quarter: 2016Q4

REPORT INFORMATION
  Report Type: Report from Study
  Country: None (occurrence: BR)
  Receive Date: 20151005
  Receipt Date: 20161230
  Transmission Date: 20170206
  Serious: Yes (Other)
  Sender: FDA-Public Use
  Company Number: BR-ABBVIE-15K-020-1472439-00

PATIENT
  Sex: Female
  Weight: 55 kg

DRUGS (22)
  1. LORATADINE. [Concomitant]
     Active Substance: LORATADINE
     Indication: HYPERSENSITIVITY
     Route: 048
     Dates: start: 2006
  2. VITAMIN B COMPLEX [Concomitant]
     Active Substance: CYANOCOBALAMIN\DEXPANTHENOL\NIACINAMIDE\PYRIDOXINE HYDROCHLORIDE\RIBOFLAVIN 5^-PHOSPHATE SODIUM\THIAMINE HYDROCHLORIDE\VITAMIN B COMPLEX
     Indication: PRODUCT USED FOR UNKNOWN INDICATION
     Route: 048
     Dates: start: 2010
  3. SERTRALINE [Concomitant]
     Active Substance: SERTRALINE HYDROCHLORIDE
     Route: 048
  4. DIAZEPAM. [Concomitant]
     Active Substance: DIAZEPAM
     Route: 048
  5. LEFLUNOMIDE. [Concomitant]
     Active Substance: LEFLUNOMIDE
     Indication: RHEUMATOID ARTHRITIS
     Route: 048
  6. IBUPROFEN. [Concomitant]
     Active Substance: IBUPROFEN
     Indication: PAIN
     Route: 048
     Dates: start: 2009
  7. LOSARTAN. [Concomitant]
     Active Substance: LOSARTAN
     Route: 048
     Dates: start: 201604
  8. PROPRANOLOL [Concomitant]
     Active Substance: PROPRANOLOL\PROPRANOLOL HYDROCHLORIDE
     Indication: HYPERTENSION
     Route: 048
  9. LORATADINE. [Concomitant]
     Active Substance: LORATADINE
     Indication: DERMATITIS CONTACT
     Route: 048
     Dates: start: 2006
  10. SERTRALINE [Concomitant]
     Active Substance: SERTRALINE HYDROCHLORIDE
     Indication: DEPRESSION
     Route: 048
     Dates: start: 2006
  11. HUMIRA [Suspect]
     Active Substance: ADALIMUMAB
     Indication: RHEUMATOID ARTHRITIS
     Route: 058
     Dates: start: 20090101
  12. DIPYRONE [Concomitant]
     Active Substance: DIPYRONE
     Indication: PAIN
     Route: 048
     Dates: start: 2009
  13. ATENOLOL. [Concomitant]
     Active Substance: ATENOLOL
     Indication: HYPERTENSION
     Route: 048
     Dates: start: 201601, end: 2016
  14. ENALAPRIL [Concomitant]
     Active Substance: ENALAPRIL
     Indication: HYPERTENSION
     Route: 048
     Dates: start: 2015
  15. IBUPROFEN. [Concomitant]
     Active Substance: IBUPROFEN
     Route: 048
  16. SIMVASTATIN. [Concomitant]
     Active Substance: SIMVASTATIN
     Route: 048
  17. DIAZEPAM. [Concomitant]
     Active Substance: DIAZEPAM
     Indication: DEPRESSION
     Route: 048
     Dates: start: 2006
  18. VIDVICK [Concomitant]
     Indication: PRODUCT USED FOR UNKNOWN INDICATION
     Dates: start: 2011
  19. OMEPRAZOLE. [Concomitant]
     Active Substance: OMEPRAZOLE
     Indication: GASTRIC DISORDER
     Route: 048
     Dates: start: 2006
  20. SIMVASTATIN. [Concomitant]
     Active Substance: SIMVASTATIN
     Indication: BLOOD CHOLESTEROL INCREASED
     Route: 048
  21. ATENOLOL. [Concomitant]
     Active Substance: ATENOLOL
     Route: 048
     Dates: start: 201604
  22. LOSARTAN. [Concomitant]
     Active Substance: LOSARTAN
     Indication: HYPERTENSION
     Route: 048
     Dates: start: 201601, end: 2016

REACTIONS (16)
  - Cataract [Not Recovered/Not Resolved]
  - Cataract [Not Recovered/Not Resolved]
  - Keratitis [Not Recovered/Not Resolved]
  - Eye inflammation [Recovered/Resolved]
  - Injury corneal [Unknown]
  - Glaucoma [Not Recovered/Not Resolved]
  - Eye inflammation [Recovered/Resolved]
  - Weight decreased [Not Recovered/Not Resolved]
  - Weight decreased [Recovered/Resolved]
  - Pain [Unknown]
  - Osteoporosis [Not Recovered/Not Resolved]
  - Drug ineffective [Unknown]
  - Dry eye [Not Recovered/Not Resolved]
  - Blindness [Not Recovered/Not Resolved]
  - Computerised tomogram thorax abnormal [Not Recovered/Not Resolved]
  - Decreased appetite [Not Recovered/Not Resolved]

NARRATIVE: CASE EVENT DATE: 2013
